FAERS Safety Report 13459549 (Version 5)
Quarter: 2018Q3

REPORT INFORMATION
  Report Type: Spontaneous
  Country: AT (occurrence: AT)
  Receive Date: 20170419
  Receipt Date: 20180921
  Transmission Date: 20181010
  Serious: Yes (Congenital Anomaly)
  Sender: FDA-Public Use
  Company Number: AT-009507513-1704AUT007219

PATIENT
  Age: 1 Day

DRUGS (7)
  1. LAMIVUDINE AND ZIDOVUDINE [Suspect]
     Active Substance: LAMIVUDINE\ZIDOVUDINE
     Route: 064
  2. LPV [Concomitant]
     Route: 064
  3. ISENTRESS [Suspect]
     Active Substance: RALTEGRAVIR POTASSIUM
     Dosage: UNK
     Route: 064
  4. LOPINAVIR (+) RITONAVIR [Suspect]
     Active Substance: LOPINAVIR\RITONAVIR
     Route: 064
  5. PREZISTA [Suspect]
     Active Substance: DARUNAVIR ETHANOLATE
     Dosage: UNK
     Route: 064
  6. ZIDOVUDINE. [Suspect]
     Active Substance: ZIDOVUDINE
     Route: 064
  7. FUZEON [Suspect]
     Active Substance: ENFUVIRTIDE
     Dosage: UNK
     Route: 064

REACTIONS (2)
  - Foetal exposure during pregnancy [Recovered/Resolved]
  - Plagiocephaly [Recovered/Resolved]
